FAERS Safety Report 6794428-2 (Version None)
Quarter: 2010Q2

REPORT INFORMATION
  Report Type: 
  Country: None (occurrence: None)
  Receive Date: 20100625
  Receipt Date: 20100615
  Transmission Date: 20101027
  Serious: No
  Sender: FDA-Public Use
  Company Number: 2009BI014470

PATIENT
  Sex: Male

DRUGS (2)
  1. TYSABRI [Suspect]
     Indication: MULTIPLE SCLEROSIS
     Route: 042
     Dates: start: 20080624, end: 20081201
  2. TYSABRI [Suspect]
     Route: 042
     Dates: start: 20090701, end: 20100101

REACTIONS (5)
  - ASTHENIA [None]
  - DRUG INEFFECTIVE [None]
  - DRUG INTOLERANCE [None]
  - GAIT DISTURBANCE [None]
  - GENERAL SYMPTOM [None]
